FAERS Safety Report 6128091-0 (Version None)
Quarter: 2009Q1

REPORT INFORMATION
  Report Type: 
  Country: None (occurrence: None)
  Receive Date: 20090319
  Receipt Date: 20090305
  Transmission Date: 20090719
  Serious: Yes (Other)
  Sender: FDA-Public Use
  Company Number: 2009000712

PATIENT
  Age: 72 Year
  Sex: Female
  Weight: 55 kg

DRUGS (10)
  1. ERLOTINIB (ERLOTINIB) (TABLET) (ERLOTINIB) [Suspect]
     Indication: LUNG ADENOCARCINOMA
     Dosage: 150 MG, QD, ORAL; 100 MG, QD, ORAL
     Route: 048
     Dates: start: 20080604, end: 20090202
  2. ERLOTINIB (ERLOTINIB) (TABLET) (ERLOTINIB) [Suspect]
     Indication: LUNG ADENOCARCINOMA
     Dosage: 150 MG, QD, ORAL; 100 MG, QD, ORAL
     Route: 048
     Dates: start: 20090203, end: 20090217
  3. CANDESARTAN CILEXETIL [Concomitant]
  4. NEUROTROPIN (ORGAN LYSATE, STANDARDIZED) [Concomitant]
  5. TIZANIDINE HCL [Concomitant]
  6. MESITAT [Concomitant]
  7. MICODYNE (CARBOCISTEINE) [Concomitant]
  8. TAGAMET [Concomitant]
  9. APLACE (TROXIPIDE) [Concomitant]
  10. GASMOTIN (MOSAPRIDE CITRATE) [Concomitant]

REACTIONS (3)
  - ANAEMIA [None]
  - PYREXIA [None]
  - RASH [None]
